FAERS Safety Report 9342864 (Version 1)
Quarter: 2013Q2

REPORT INFORMATION
  Report Type: Spontaneous
  Country: US (occurrence: US)
  Receive Date: 20130611
  Receipt Date: 20130611
  Transmission Date: 20140414
  Serious: Yes (Hospitalization)
  Sender: FDA-Public Use
  Company Number: US-JNJFOC-20120609332

PATIENT
  Age: 45 Year
  Sex: Male
  Weight: 86.18 kg

DRUGS (5)
  1. ZYRTEC IR [Suspect]
     Indication: SEASONAL ALLERGY
     Route: 048
  2. ZYRTEC IR [Suspect]
     Indication: SEASONAL ALLERGY
     Dosage: 1 TABLET EVERY OTHER DAY; STOPPED IN OCTOBER OR NOVEMBER
     Route: 048
     Dates: start: 201109
  3. METFORMIN [Concomitant]
     Indication: DIABETES MELLITUS
     Dosage: SINCE 8-10 YEARS
     Route: 065
  4. PRAVASTATIN [Concomitant]
     Indication: BLOOD CHOLESTEROL INCREASED
     Dosage: SINCE 8-10 YEARS
     Route: 065
  5. LISINOPRIL [Concomitant]
     Indication: HYPERTENSION
     Dosage: SINCE 8-10 YEARS
     Route: 065

REACTIONS (8)
  - Immune system disorder [Unknown]
  - Anaphylactic reaction [Unknown]
  - Loss of consciousness [Unknown]
  - Urticaria [Recovered/Resolved]
  - Rash [Unknown]
  - Overdose [Unknown]
  - Drug ineffective [Unknown]
  - Pyrexia [Recovered/Resolved]
